FAERS Safety Report 4840468-X (Version None)
Quarter: 2005Q4

REPORT INFORMATION
  Report Type: 
  Country: None (occurrence: None)
  Receive Date: 20051129
  Receipt Date: 20051129
  Transmission Date: 20060501
  Serious: Yes (Other)
  Sender: FDA-Public Use
  Company Number: None

PATIENT
  Sex: Female
  Weight: 45.3597 kg

DRUGS (1)
  1. ZOMETA [Suspect]

REACTIONS (3)
  - BONE DISORDER [None]
  - PALATAL DISORDER [None]
  - ULCER [None]
